FAERS Safety Report 10524961 (Version 1)
Quarter: 2014Q4

REPORT INFORMATION
  Report Type: Spontaneous
  Country: GB (occurrence: GB)
  Receive Date: 20141017
  Receipt Date: 20141017
  Transmission Date: 20150528
  Serious: Yes (Other)
  Sender: FDA-Public Use
  Company Number: GB-SA-2014SA138415

PATIENT
  Age: 90 Year
  Sex: Female
  Weight: 73.1 kg

DRUGS (5)
  1. DOXAZOSIN [Concomitant]
     Active Substance: DOXAZOSIN\DOXAZOSIN MESYLATE
     Dates: start: 20140708
  2. LOSARTAN [Concomitant]
     Active Substance: LOSARTAN
     Dates: start: 20140513
  3. HYPROMELLOSE [Concomitant]
     Active Substance: HYPROMELLOSES
     Dates: start: 20140708
  4. ATENOLOL. [Concomitant]
     Active Substance: ATENOLOL
     Dates: start: 20140708
  5. INDAPAMIDE. [Suspect]
     Active Substance: INDAPAMIDE
     Route: 065
     Dates: start: 20140514

REACTIONS (1)
  - Paraesthesia [Recovering/Resolving]

NARRATIVE: CASE EVENT DATE: 20140909
